FAERS Safety Report 25307603 (Version 1)
Quarter: 2025Q2

REPORT INFORMATION
  Report Type: Report from Study
  Country: CA (occurrence: CA)
  Receive Date: 20250513
  Receipt Date: 20250513
  Transmission Date: 20250716
  Serious: Yes (Other)
  Sender: JOHNSON AND JOHNSON
  Company Number: CA-JNJFOC-20250310492

PATIENT
  Age: 16 Year
  Sex: Female
  Weight: 77.1 kg

DRUGS (3)
  1. REMICADE [Suspect]
     Active Substance: INFLIXIMAB
     Indication: Juvenile idiopathic arthritis
     Route: 041
     Dates: start: 20201125
  2. REMICADE [Suspect]
     Active Substance: INFLIXIMAB
     Route: 041
  3. REMICADE [Suspect]
     Active Substance: INFLIXIMAB
     Route: 041

REACTIONS (5)
  - Myiasis [Recovering/Resolving]
  - Underdose [Unknown]
  - Nasopharyngitis [Recovering/Resolving]
  - Weight increased [Unknown]
  - Cough [Not Recovered/Not Resolved]

NARRATIVE: CASE EVENT DATE: 20250303
